FAERS Safety Report 7714552-7 (Version None)
Quarter: 2011Q3

REPORT INFORMATION
  Report Type: 
  Country: None (occurrence: None)
  Receive Date: 20110822
  Receipt Date: 20110808
  Transmission Date: 20111222
  Serious: Yes (Life-Threatening, Hospitalization, Other)
  Sender: FDA-Public Use
  Company Number: AUR-APL-2010-00005

PATIENT
  Age: 48 Year
  Sex: Female

DRUGS (2)
  1. FUROSEMIDE [Suspect]
     Indication: SYSTOLIC HYPERTENSION
     Dosage: 25 MG, 1 D
  2. CITALOPRAM HYDROBROMIDE [Suspect]
     Indication: MAJOR DEPRESSION
     Dosage: 40 MG, 1 D

REACTIONS (9)
  - TORSADE DE POINTES [None]
  - BLOOD MAGNESIUM DECREASED [None]
  - HYPOCHLORAEMIA [None]
  - HYPOKALAEMIA [None]
  - SYNCOPE [None]
  - LONG QT SYNDROME [None]
  - DIARRHOEA [None]
  - VENTRICULAR TACHYCARDIA [None]
  - INFLUENZA LIKE ILLNESS [None]
